FAERS Safety Report 14108085 (Version 1)
Quarter: 2017Q4

REPORT INFORMATION
  Report Type: Spontaneous
  Country: NO (occurrence: NO)
  Receive Date: 20171019
  Receipt Date: 20171019
  Transmission Date: 20180321
  Serious: Yes (Other)
  Sender: FDA-Public Use
  Company Number: NO-MYLANLABS-2017M1064736

PATIENT
  Age: 6 Decade
  Sex: Male

DRUGS (1)
  1. TAMOXIFEN MYLAN [Suspect]
     Active Substance: TAMOXIFEN
     Indication: BREAST CANCER METASTATIC
     Dosage: UNK

REACTIONS (1)
  - Breast cancer [Unknown]
